FAERS Safety Report 18235068 (Version 1)
Quarter: 2020Q3

REPORT INFORMATION
  Report Type: Spontaneous
  Country: JP (occurrence: JP)
  Receive Date: 20200904
  Receipt Date: 20200904
  Transmission Date: 20201103
  Serious: Yes (Other)
  Sender: FDA-Public Use
  Company Number: JP-TOLMAR, INC.-20JP022607

PATIENT
  Age: 76 Year
  Sex: Male
  Weight: 59.2 kg

DRUGS (7)
  1. ATENOLOL. [Concomitant]
     Active Substance: ATENOLOL
     Indication: HYPERTENSION
     Dosage: UNK
     Route: 065
  2. WARFARIN POTASSIUM [Concomitant]
     Active Substance: WARFARIN POTASSIUM
     Indication: ATRIAL FIBRILLATION
     Dosage: UNK
     Route: 065
  3. ELIGARD [Suspect]
     Active Substance: LEUPROLIDE ACETATE
     Dosage: UNK, Q 3 MONTH
     Route: 065
     Dates: start: 201305, end: 201309
  4. ELIGARD [Suspect]
     Active Substance: LEUPROLIDE ACETATE
     Indication: PROSTATE CANCER
     Dosage: 3.75 MG, Q 1 MONTH
     Route: 065
     Dates: start: 201108, end: 201305
  5. FLUTAMIDE. [Suspect]
     Active Substance: FLUTAMIDE
     Indication: PROSTATE CANCER
     Route: 065
  6. BICALUTAMIDE. [Suspect]
     Active Substance: BICALUTAMIDE
     Indication: PROSTATE CANCER
     Dosage: 80 MG, QD
     Route: 065
     Dates: start: 201108
  7. ELIGARD [Suspect]
     Active Substance: LEUPROLIDE ACETATE
     Dosage: UNK, Q 1 MONTH
     Route: 065
     Dates: start: 2014

REACTIONS (4)
  - Injection site induration [Unknown]
  - Drug ineffective [Unknown]
  - Hepatic function abnormal [Unknown]
  - Injection site abscess [Unknown]

NARRATIVE: CASE EVENT DATE: 201212
